FAERS Safety Report 18357370 (Version 1)
Quarter: 2020Q4

REPORT INFORMATION
  Report Type: Spontaneous
  Country: CA (occurrence: CA)
  Receive Date: 20201007
  Receipt Date: 20201007
  Transmission Date: 20210114
  Serious: Yes (Hospitalization, Other)
  Sender: FDA-Public Use
  Company Number: CA-JNJFOC-A-US2020-207357

PATIENT
  Age: 63 Year
  Sex: Female

DRUGS (8)
  1. COZAAR [Concomitant]
     Active Substance: LOSARTAN POTASSIUM
  2. SILDENAFIL. [Concomitant]
     Active Substance: SILDENAFIL
  3. AMITRIPTYLINE [Concomitant]
     Active Substance: AMITRIPTYLINE
     Dosage: UNK
  4. BACLOPHEN [Concomitant]
     Active Substance: BACLOFEN
  5. DETROL LA [Concomitant]
     Active Substance: TOLTERODINE TARTRATE
  6. TRACLEER [Suspect]
     Active Substance: BOSENTAN
     Indication: PULMONARY ARTERIAL HYPERTENSION
     Dosage: 125 MG
     Route: 048
     Dates: start: 20200414
  7. JANUVIA [Concomitant]
     Active Substance: SITAGLIPTIN PHOSPHATE
  8. PANTOPRAZOLE [Concomitant]
     Active Substance: PANTOPRAZOLE

REACTIONS (3)
  - Hospitalisation [Recovering/Resolving]
  - Liver function test increased [Unknown]
  - Hepatotoxicity [Not Recovered/Not Resolved]
